FAERS Safety Report 15582937 (Version 1)
Quarter: 2018Q4

REPORT INFORMATION
  Report Type: Spontaneous
  Country: US (occurrence: US)
  Receive Date: 20181103
  Receipt Date: 20181103
  Transmission Date: 20190205
  Serious: No
  Sender: FDA-Public Use
  Company Number: US-TEVA-2018-US-970649

PATIENT

DRUGS (1)
  1. QNASL [Suspect]
     Active Substance: BECLOMETHASONE DIPROPIONATE
     Indication: RHINITIS
     Dosage: RIGHT NOSTRIL: 1 SPRAY, LEFT NOSTRIL: 2 SPRAYS, MORNING AND EVENING

REACTIONS (2)
  - Product dispensing issue [Unknown]
  - Drug ineffective [Unknown]
